FAERS Safety Report 20141011 (Version 1)
Quarter: 2021Q4

REPORT INFORMATION
  Report Type: Spontaneous
  Country: FR (occurrence: FR)
  Receive Date: 20211202
  Receipt Date: 20211202
  Transmission Date: 20220304
  Serious: Yes (Hospitalization, Other)
  Sender: FDA-Public Use
  Company Number: None

PATIENT
  Age: 38 Year
  Sex: Female
  Weight: 77 kg

DRUGS (4)
  1. LANSOPRAZOLE [Interacting]
     Active Substance: LANSOPRAZOLE
     Indication: Prophylaxis against gastrointestinal ulcer
     Dosage: 15 MILLIGRAM, QD
     Route: 048
     Dates: start: 20210827, end: 20210831
  2. PROGRAF [Interacting]
     Active Substance: TACROLIMUS
     Indication: Heart transplant
     Dosage: 5.5 MILLIGRAM, QD
     Route: 048
     Dates: start: 2009, end: 20210830
  3. CERTICAN [Interacting]
     Active Substance: EVEROLIMUS
     Indication: Heart transplant
     Dosage: 4.75 MILLIGRAM, QD
     Route: 048
     Dates: start: 2009, end: 20210830
  4. CASIRIVIMAB\IMDEVIMAB [Interacting]
     Active Substance: CASIRIVIMAB\IMDEVIMAB
     Indication: COVID-19 treatment
     Dosage: 1200 MILLIGRAM, TOTAL(1200 MG DE CASIRIVIMAB ET 1200 MG D^IMDEVIMAB)
     Route: 041
     Dates: start: 20210827, end: 20210827

REACTIONS (4)
  - Overdose [Recovered/Resolved]
  - Immunosuppressant drug level increased [Recovered/Resolved]
  - Renal failure [Recovered/Resolved]
  - Drug interaction [Recovered/Resolved]

NARRATIVE: CASE EVENT DATE: 20210827
